FAERS Safety Report 4655434-7 (Version None)
Quarter: 2005Q2

REPORT INFORMATION
  Report Type: 
  Country: None (occurrence: None)
  Receive Date: 20050505
  Receipt Date: 20050420
  Transmission Date: 20051028
  Serious: Yes (Other)
  Sender: FDA-Public Use
  Company Number: USA050496073

PATIENT
  Age: 73 Year
  Sex: Female

DRUGS (6)
  1. FORTEO [Suspect]
     Dosage: 20 UG
  2. PLAVIX [Concomitant]
  3. PRAVACHOL [Concomitant]
  4. APO-METOPROLOL (METOPROLOL TARTRATE) [Concomitant]
  5. TUMS (CALCIUM CARBONATE) [Concomitant]
  6. MULTIVITAMIN [Concomitant]

REACTIONS (3)
  - FALL [None]
  - LOSS OF CONSCIOUSNESS [None]
  - PHARMACEUTICAL PRODUCT COMPLAINT [None]
